FAERS Safety Report 5075968-3 (Version None)
Quarter: 2006Q3

REPORT INFORMATION
  Report Type: 
  Country: None (occurrence: None)
  Receive Date: 20060714
  Receipt Date: 20060505
  Transmission Date: 20061208
  Serious: No
  Sender: FDA-Public Use
  Company Number: 2006SP001970

PATIENT
  Age: 62 Year
  Sex: Female
  Weight: 95.2554 kg

DRUGS (4)
  1. LUNESTA [Suspect]
     Indication: INSOMNIA
     Dosage: 3 MG;HS;ORAL
     Route: 048
     Dates: start: 20060501, end: 20060503
  2. ATENOLOL [Concomitant]
  3. VERAPAMIL [Concomitant]
  4. AMBIEN [Concomitant]

REACTIONS (6)
  - DIARRHOEA [None]
  - DIVERTICULITIS [None]
  - DYSGEUSIA [None]
  - INSOMNIA [None]
  - NAUSEA [None]
  - VOMITING [None]
